FAERS Safety Report 9206569 (Version 2)
Quarter: 2013Q4

REPORT INFORMATION
  Report Type: Spontaneous
  Country: US (occurrence: US)
  Receive Date: 20130403
  Receipt Date: 20131216
  Transmission Date: 20140711
  Serious: Yes (Other)
  Sender: FDA-Public Use
  Company Number: US-BAYER-2013-040395

PATIENT
  Age: 29 Year
  Sex: Female

DRUGS (2)
  1. YAZ [Suspect]
     Dosage: UNK
     Dates: start: 2008, end: 2011
  2. YASMIN [Suspect]
     Dosage: UNK
     Dates: start: 2004, end: 2008

REACTIONS (2)
  - Cholecystitis acute [None]
  - Cholecystectomy [None]
